FAERS Safety Report 25189052 (Version 1)
Quarter: 2025Q2

REPORT INFORMATION
  Report Type: Spontaneous
  Country: US (occurrence: None)
  Receive Date: 20250411
  Receipt Date: 20250411
  Transmission Date: 20250716
  Serious: Yes (Hospitalization)
  Sender: FDA-CTU
  Company Number: None

PATIENT
  Sex: Male

DRUGS (2)
  1. GENTAMICIN [Suspect]
     Active Substance: GENTAMICIN
     Indication: Neurogenic bladder
     Dosage: FREQUENCY : EVERY OTHER DAY;?
     Dates: start: 20220302
  2. FLUVOXAMINE TAB 25MG [Concomitant]

REACTIONS (1)
  - Urinary tract infection [None]
